FAERS Safety Report 10675079 (Version 8)
Quarter: 2015Q2

REPORT INFORMATION
  Report Type: Report from Study
  Country: PE (occurrence: PE)
  Receive Date: 20141224
  Receipt Date: 20150630
  Transmission Date: 20150821
  Serious: Yes (Death, Other)
  Sender: FDA-Public Use
  Company Number: PE-BRISTOL-MYERS SQUIBB COMPANY-BMS-2014-000825

PATIENT
  Age: 31 Year
  Sex: Male
  Weight: 52 kg

DRUGS (4)
  1. EFAVIRENZ [Suspect]
     Active Substance: EFAVIRENZ
     Indication: HIV INFECTION
     Dosage: 600 MG, QD
     Route: 048
     Dates: start: 20140131, end: 20141114
  2. ISONIAZID. [Concomitant]
     Active Substance: ISONIAZID
     Indication: HIV INFECTION
     Dosage: 300 MG, QD
     Route: 048
     Dates: start: 20140131, end: 20141114
  3. EMTRICITABINE W/TENOFOVIR DISOPROXIL FUMARATE [Concomitant]
     Active Substance: EMTRICITABINE\TENOFOVIR DISOPROXIL
     Indication: HIV INFECTION
     Dosage: UNK; 200/300 MG
     Route: 048
     Dates: start: 20140131, end: 20141114
  4. PYRIDOXINE [Concomitant]
     Active Substance: PYRIDOXINE
     Indication: PROPHYLAXIS
     Dosage: UNK, QD
     Route: 048
     Dates: end: 20141114

REACTIONS (9)
  - Multi-organ failure [Fatal]
  - Syphilis [Unknown]
  - Haematochezia [Recovered/Resolved]
  - Colon cancer [Fatal]
  - Non-Hodgkin^s lymphoma [Fatal]
  - Sepsis [Fatal]
  - Proctalgia [Recovered/Resolved]
  - Leukaemia [Unknown]
  - Anaemia [Fatal]

NARRATIVE: CASE EVENT DATE: 20140207
